FAERS Safety Report 16303964 (Version 1)
Quarter: 2019Q2

REPORT INFORMATION
  Report Type: Spontaneous
  Country: US (occurrence: US)
  Receive Date: 20190405
  Receipt Date: 20190405
  Transmission Date: 20190711
  Serious: Yes (Life-Threatening, Disabling, Other)
  Sender: FDA-Public Use
  Company Number: None

PATIENT

DRUGS (1)
  1. GADOLINIUM BASED CONTRAST AGENT [Suspect]
     Active Substance: GADOLINIUM

REACTIONS (5)
  - Urticaria [None]
  - Dyspnoea [None]
  - Nausea [None]
  - Swelling [None]
  - Rash [None]

NARRATIVE: CASE EVENT DATE: 20190121
